FAERS Safety Report 9240759 (Version 1)
Quarter: 2013Q2

REPORT INFORMATION
  Report Type: Spontaneous
  Country: US (occurrence: None)
  Receive Date: 20130418
  Receipt Date: 20130418
  Transmission Date: 20140414
  Serious: No
  Sender: FDA-Public Use
  Company Number: None

PATIENT
  Age: 59 Year
  Sex: Male
  Weight: 90.6 kg

DRUGS (1)
  1. ALBUTEROL/IPRATROPIUM [Suspect]
     Indication: CHRONIC OBSTRUCTIVE PULMONARY DISEASE
     Route: 055
     Dates: start: 20130222, end: 20130416

REACTIONS (3)
  - Oropharyngeal pain [None]
  - Headache [None]
  - Pharyngeal oedema [None]
